FAERS Safety Report 5507145-3 (Version None)
Quarter: 2007Q4

REPORT INFORMATION
  Report Type: 
  Country: None (occurrence: None)
  Receive Date: 20071102
  Receipt Date: 20071023
  Transmission Date: 20080405
  Serious: Yes (Other)
  Sender: FDA-Public Use
  Company Number: 239128K07USA

PATIENT
  Age: 54 Year
  Sex: Female
  Weight: 63.5036 kg

DRUGS (10)
  1. REBIF [Suspect]
     Indication: MULTIPLE SCLEROSIS
     Dosage: 44 MCG, 3 IN 1 WEEKS, SUBCUTANEOUS
     Route: 058
     Dates: start: 20070508
  2. SOLU-MEDROL [Suspect]
     Dosage: INTRAVENOUS (NOT OTHERWISE SPECIFIED)
     Route: 042
     Dates: start: 20070929, end: 20071003
  3. LANTUS [Suspect]
     Dates: end: 20071001
  4. METFORMIN HCL [Concomitant]
  5. ADDERALL                  (OBETROL) [Concomitant]
  6. AMBIEN [Concomitant]
  7. REGLAN [Concomitant]
  8. MIRTAZAPINE [Concomitant]
  9. WELLBUTRIN [Concomitant]
  10. TEMAZEPAM [Concomitant]

REACTIONS (8)
  - BLOOD GLUCOSE FLUCTUATION [None]
  - CONDITION AGGRAVATED [None]
  - HYPOGLYCAEMIC SEIZURE [None]
  - INCORRECT DOSE ADMINISTERED [None]
  - INJECTION SITE PAIN [None]
  - INJECTION SITE REACTION [None]
  - MULTIPLE SCLEROSIS [None]
  - REFUSAL OF TREATMENT BY PATIENT [None]
